FAERS Safety Report 7559510-0 (Version None)
Quarter: 2011Q2

REPORT INFORMATION
  Report Type: 
  Country: None (occurrence: None)
  Receive Date: 20110621
  Receipt Date: 20110614
  Transmission Date: 20111010
  Serious: Yes (Hospitalization)
  Sender: FDA-Public Use
  Company Number: FR-SANOFI-AVENTIS-2011SA037486

PATIENT
  Age: 65 Year
  Sex: Male

DRUGS (5)
  1. RAMIPRIL [Concomitant]
     Route: 048
     Dates: start: 20100101
  2. MULTAQ [Suspect]
     Indication: ATRIAL FIBRILLATION
     Route: 048
     Dates: start: 20110301, end: 20110525
  3. EZETIMIBE [Concomitant]
  4. FUROSEMIDE [Concomitant]
     Route: 048
     Dates: start: 20100101
  5. PREVISCAN [Concomitant]

REACTIONS (1)
  - RENAL FAILURE [None]
